FAERS Safety Report 24400330 (Version 5)
Quarter: 2024Q4

REPORT INFORMATION
  Report Type: Report from Study
  Country: KR (occurrence: KR)
  Receive Date: 20241005
  Receipt Date: 20241205
  Transmission Date: 20250115
  Serious: Yes (Death, Hospitalization)
  Sender: AMGEN
  Company Number: KR-AMGEN-KORNI2024193998

PATIENT
  Age: 54 Year
  Sex: Male

DRUGS (4)
  1. TARLATAMAB [Suspect]
     Active Substance: TARLATAMAB
     Indication: Neuroendocrine breast tumour
     Dosage: 1 MILLIGRAM, QD
     Route: 042
     Dates: start: 20240925, end: 20240925
  2. TARLATAMAB [Suspect]
     Active Substance: TARLATAMAB
     Indication: Lung neoplasm malignant
  3. DEXAMETHASONE [Concomitant]
     Active Substance: DEXAMETHASONE
     Dosage: 8-30 MILLIGRAM, QD
     Route: 042
     Dates: start: 20240925, end: 20240928
  4. CEFTRIAXONE SODIUM [Concomitant]
     Active Substance: CEFTRIAXONE SODIUM
     Dosage: 2 GRAM, QD
     Route: 042
     Dates: start: 20240924, end: 20240927

REACTIONS (1)
  - Pulmonary oedema [Fatal]

NARRATIVE: CASE EVENT DATE: 20240927
